FAERS Safety Report 24895026 (Version 1)
Quarter: 2025Q1

REPORT INFORMATION
  Report Type: Other
  Country: IN (occurrence: IN)
  Receive Date: 20250128
  Receipt Date: 20250128
  Transmission Date: 20250408
  Serious: Yes (Other)
  Sender: B BRAUN
  Company Number: IN-B.Braun Medical Inc.-2169935

PATIENT
  Age: 4 Year
  Sex: Female
  Weight: 12.6 kg

DRUGS (9)
  1. ACETAMINOPHEN [Suspect]
     Active Substance: ACETAMINOPHEN
  2. GABAPENTIN [Concomitant]
     Active Substance: GABAPENTIN
  3. CLONAZEPAM [Concomitant]
     Active Substance: CLONAZEPAM
  4. FOSPHENYTOIN [Concomitant]
     Active Substance: FOSPHENYTOIN
  5. DOXYCYCLINE [Concomitant]
     Active Substance: DOXYCYCLINE
  6. AMIKACIN [Concomitant]
     Active Substance: AMIKACIN
  7. CEFTRIAXONE [Concomitant]
     Active Substance: CEFTRIAXONE
  8. MIDAZOLAM [Concomitant]
     Active Substance: MIDAZOLAM
  9. TETRABENAZINE [Concomitant]
     Active Substance: TETRABENAZINE

REACTIONS (1)
  - Drug ineffective [Unknown]
